FAERS Safety Report 10375771 (Version 1)
Quarter: 2014Q1

REPORT INFORMATION
  Report Type: Spontaneous
  Country: US (occurrence: None)
  Receive Date: 20140306
  Receipt Date: 20140306
  Transmission Date: 20141002
  Serious: Yes (Hospitalization, Other)
  Sender: FDA-Public Use
  Company Number: 163-21880-13121886

PATIENT
  Age: 56 Year
  Sex: Female

DRUGS (12)
  1. REVLIMID (LENALIDOMIDE) (CAPSULES) [Suspect]
     Indication: PLASMA CELL MYELOMA
     Route: 048
     Dates: start: 20110218
  2. XARELTO (RIVAROXBAN) [Concomitant]
  3. VELCADE (BORTEZOMIB) [Concomitant]
  4. MUCINEX MAXIMUM STRENGTH [Concomitant]
  5. NEXIUM (ESMOPRAZOLE) [Concomitant]
  6. DEXAMETHAZONE [Concomitant]
  7. MORPHINE SULFATE [Concomitant]
  8. POTASSIUM CHLORIDE [Concomitant]
  9. FLUCONAZOLE [Concomitant]
  10. ACYCLOVIR (ACICLOVIR) [Concomitant]
  11. PERCOCET (OXYCOCET) [Concomitant]
  12. PROCHLORPERAZINE MALEATE [Concomitant]

REACTIONS (5)
  - Urinary tract infection [None]
  - Pneumonia [None]
  - Pulmonary embolism [None]
  - Thrombosis [None]
  - Pruritus [None]
